FAERS Safety Report 5340610-0 (Version None)
Quarter: 2007Q2

REPORT INFORMATION
  Report Type: 
  Country: None (occurrence: None)
  Receive Date: 20070405
  Receipt Date: 20070110
  Transmission Date: 20071010
  Serious: No
  Sender: FDA-Public Use
  Company Number: US200701001918

PATIENT
  Sex: Male

DRUGS (4)
  1. CYMBALTA [Suspect]
     Indication: DEPRESSION
     Dosage: 30 MG, ORAL
     Route: 048
     Dates: start: 20061201
  2. CIALIS [Concomitant]
  3. VIAGRA [Concomitant]
  4. WELLBUTRIN [Concomitant]

REACTIONS (5)
  - ERYTHEMA [None]
  - FLUSHING [None]
  - HEADACHE [None]
  - HYPERHIDROSIS [None]
  - SEXUAL DYSFUNCTION [None]
